FAERS Safety Report 15011226 (Version 1)
Quarter: 2018Q2

REPORT INFORMATION
  Report Type: Spontaneous
  Country: IT (occurrence: IT)
  Receive Date: 20180614
  Receipt Date: 20180614
  Transmission Date: 20180711
  Serious: No
  Sender: FDA-Public Use
  Company Number: IT-B. BRAUN MEDICAL INC.-2049415

PATIENT
  Age: 28 Year
  Sex: Male
  Weight: 59 kg

DRUGS (1)
  1. METRONIDAZOLE INJECTION USP (5 MG/ML) IN PAB? PLASTIC CONTAINER [Suspect]
     Active Substance: METRONIDAZOLE
     Indication: PROPHYLAXIS
     Route: 042
     Dates: start: 20171111, end: 20171111

REACTIONS (1)
  - Erythema [None]

NARRATIVE: CASE EVENT DATE: 20171111
